FAERS Safety Report 24798302 (Version 1)
Quarter: 2025Q1

REPORT INFORMATION
  Report Type: Spontaneous
  Country: US (occurrence: US)
  Receive Date: 20250102
  Receipt Date: 20250102
  Transmission Date: 20250409
  Serious: No
  Sender: MERCK
  Company Number: US-009507513-2412USA006921

PATIENT
  Age: 81 Year
  Sex: Male

DRUGS (2)
  1. KEYTRUDA [Suspect]
     Active Substance: PEMBROLIZUMAB
     Indication: Malignant melanoma
     Dates: start: 202405, end: 2024
  2. IMLYGIC [Suspect]
     Active Substance: TALIMOGENE LAHERPAREPVEC
     Indication: Malignant melanoma
     Dates: start: 2024

REACTIONS (2)
  - Hepatic enzyme increased [Not Recovered/Not Resolved]
  - Lymphadenopathy [Unknown]

NARRATIVE: CASE EVENT DATE: 20240901
